FAERS Safety Report 8244026-9 (Version None)
Quarter: 2012Q1

REPORT INFORMATION
  Report Type: 
  Country: None (occurrence: None)
  Receive Date: 20120329
  Receipt Date: 20120322
  Transmission Date: 20120608
  Serious: Yes (Hospitalization)
  Sender: FDA-Public Use
  Company Number: FR-BAYER-2012-028859

PATIENT
  Age: 2 Year
  Sex: Female
  Weight: 12 kg

DRUGS (2)
  1. PIPERACILLIN SODIUM [Suspect]
     Dosage: 900 MG, TID
     Route: 042
     Dates: start: 20110614, end: 20110921
  2. CIPROFLOXACIN [Suspect]
     Dosage: 250 MG, BID
     Route: 048
     Dates: start: 20110614, end: 20110921

REACTIONS (10)
  - DRUG RASH WITH EOSINOPHILIA AND SYSTEMIC SYMPTOMS [None]
  - EOSINOPHILIA [None]
  - PYREXIA [None]
  - RASH MACULO-PAPULAR [None]
  - CYTOLYTIC HEPATITIS [None]
  - APLASIA PURE RED CELL [None]
  - BICYTOPENIA [None]
  - HISTIOCYTOSIS HAEMATOPHAGIC [None]
  - DERMATITIS EXFOLIATIVE [None]
  - NEUTROPENIA [None]
